FAERS Safety Report 9147114 (Version 1)
Quarter: 2013Q1

REPORT INFORMATION
  Report Type: Report from Study
  Country: US (occurrence: US)
  Receive Date: 20130307
  Receipt Date: 20130307
  Transmission Date: 20140127
  Serious: Yes (Hospitalization)
  Sender: FDA-Public Use
  Company Number: US-ROCHE-1198377

PATIENT
  Sex: Male

DRUGS (3)
  1. RITUXAN [Suspect]
     Indication: GRANULOMATOSIS WITH POLYANGIITIS
     Route: 042
     Dates: start: 201302
  2. LANTUS [Concomitant]
     Indication: DIABETES MELLITUS
     Route: 058
  3. GLUCOPHAGE [Concomitant]
     Indication: DIABETES MELLITUS
     Route: 048

REACTIONS (6)
  - Cerebrovascular accident [Unknown]
  - Blood glucose decreased [Unknown]
  - Convulsion [Unknown]
  - Cough [Unknown]
  - Fatigue [Unknown]
  - Oedema peripheral [Unknown]
